FAERS Safety Report 24258764 (Version 5)
Quarter: 2024Q4

REPORT INFORMATION
  Report Type: Report from Study
  Country: PT (occurrence: PT)
  Receive Date: 20240828
  Receipt Date: 20241002
  Transmission Date: 20250115
  Serious: Yes (Other)
  Sender: ABBVIE
  Company Number: PT-ABBVIE-5895940

PATIENT
  Age: 77 Year
  Sex: Female

DRUGS (12)
  1. CARBIDOPA\LEVODOPA [Suspect]
     Active Substance: CARBIDOPA\LEVODOPA
     Indication: Parkinson^s disease
     Dosage: BEFORE DUODOPA
     Route: 058
  2. CARBIDOPA\LEVODOPA [Suspect]
     Active Substance: CARBIDOPA\LEVODOPA
  3. CARBIDOPA\LEVODOPA [Suspect]
     Active Substance: CARBIDOPA\LEVODOPA
     Indication: Parkinson^s disease
     Dosage: 240 MG + 12 MG, BA:0.66; LO:0.27; HI:0.68; LO:1.7; X:0.2
     Route: 058
     Dates: start: 20240626, end: 2024
  4. CARBIDOPA\LEVODOPA [Suspect]
     Active Substance: CARBIDOPA\LEVODOPA
     Indication: Parkinson^s disease
     Dosage: 240 MG + 12 MG, BA:0.68; LO:0.27; HI:0.74; LO:1.7;X:0.25
     Route: 058
     Dates: start: 20240822, end: 202409
  5. CARBIDOPA\LEVODOPA [Suspect]
     Active Substance: CARBIDOPA\LEVODOPA
     Indication: Parkinson^s disease
     Dosage: 240 MG + 12 MG, BASE:0.51; LOW:0.23; HIGH:0.60; EXT:0.15
     Route: 058
     Dates: start: 2024, end: 20240822
  6. CARBIDOPA\LEVODOPA [Suspect]
     Active Substance: CARBIDOPA\LEVODOPA
     Indication: Parkinson^s disease
     Dosage: 240 MG + 12 MG, BA:0.68; LO:0.34; HI:0.74; LO:1.7;X:0.25
     Route: 058
     Dates: start: 202409
  7. FOLIC ACID [Concomitant]
     Active Substance: FOLIC ACID
     Indication: Product used for unknown indication
     Dosage: 1 TABLET, AT LUNCH, AFTER DUODOPA
     Route: 048
  8. BUSCALMA [Concomitant]
     Indication: Product used for unknown indication
     Dosage: 2 TABLET, 5 MILLIGRAM, AT DINNER, BEFORE DUODOPA
     Route: 048
  9. RIVOTRIL [Concomitant]
     Active Substance: CLONAZEPAM
     Indication: Product used for unknown indication
     Dosage: 1 TABLET, AT BEDTIME, BEFORE DUODOPA
     Route: 048
  10. LETROZOLE [Concomitant]
     Active Substance: LETROZOLE
     Indication: Product used for unknown indication
     Dosage: 1 TABLET, AT DINNER, BEFORE DUODOPA
     Route: 048
  11. VENLAFAXINE [Concomitant]
     Active Substance: VENLAFAXINE HYDROCHLORIDE
     Indication: Product used for unknown indication
     Dosage: 1 TABLET, AT BREAKFAST, BEFORE DUODOPA
     Route: 048
  12. CHOLECALCIFEROL [Concomitant]
     Active Substance: CHOLECALCIFEROL
     Indication: Product used for unknown indication
     Dosage: AFTER DUODOPA
     Route: 048

REACTIONS (9)
  - Catheter site erythema [Recovered/Resolved]
  - Catheter site warmth [Recovered/Resolved]
  - Infusion site swelling [Recovered/Resolved]
  - Infusion site pain [Recovered/Resolved]
  - Catheter site pain [Recovered/Resolved]
  - Infusion site warmth [Recovered/Resolved]
  - Catheter site swelling [Recovered/Resolved]
  - Infusion site swelling [Recovered/Resolved]
  - Infusion site erythema [Recovered/Resolved]

NARRATIVE: CASE EVENT DATE: 20240820
